FAERS Safety Report 8435657-1 (Version None)
Quarter: 2012Q2

REPORT INFORMATION
  Report Type: 
  Country: None (occurrence: None)
  Receive Date: 20120614
  Receipt Date: 20120607
  Transmission Date: 20120825
  Serious: Yes (Hospitalization, Other)
  Sender: FDA-Public Use
  Company Number: IT-JNJFOC-20120516793

PATIENT
  Sex: Female

DRUGS (6)
  1. PHENOBARBITAL TAB [Concomitant]
     Indication: ILL-DEFINED DISORDER
     Route: 048
  2. TEGRETOL [Concomitant]
     Indication: ILL-DEFINED DISORDER
     Route: 048
  3. ROCALTROL [Concomitant]
     Indication: ILL-DEFINED DISORDER
     Route: 048
  4. TOPIRAMATE [Suspect]
     Indication: EPILEPSY
     Route: 048
     Dates: start: 20120519, end: 20120519
  5. LEVOTHYROXINE SODIUM [Concomitant]
     Indication: ILL-DEFINED DISORDER
     Route: 048
  6. LORAZEPAM [Concomitant]
     Indication: ILL-DEFINED DISORDER
     Route: 048

REACTIONS (1)
  - SELF INJURIOUS BEHAVIOUR [None]
